FAERS Safety Report 17524783 (Version 1)
Quarter: 2020Q1

REPORT INFORMATION
  Report Type: Spontaneous
  Country: US (occurrence: US)
  Receive Date: 20200310
  Receipt Date: 20200310
  Transmission Date: 20200409
  Serious: No
  Sender: FDA-Public Use
  Company Number: None

PATIENT
  Age: 58 Year
  Sex: Female
  Weight: 47.25 kg

DRUGS (1)
  1. ASPERCREME NOS [Suspect]
     Active Substance: MENTHOL\TROLAMINE SALICYLATE
     Indication: MUSCLE DISORDER
     Dates: start: 20200309, end: 20200309

REACTIONS (1)
  - Application site pain [None]

NARRATIVE: CASE EVENT DATE: 20200309
